FAERS Safety Report 18096963 (Version 1)
Quarter: 2020Q3

REPORT INFORMATION
  Report Type: Report from Study
  Country: US (occurrence: US)
  Receive Date: 20200730
  Receipt Date: 20200730
  Transmission Date: 20201103
  Serious: Yes (Hospitalization)
  Sender: FDA-Public Use
  Company Number: US-EISAI MEDICAL RESEARCH-EC-2020-077383

PATIENT
  Age: 57 Year
  Sex: Female
  Weight: 49.4 kg

DRUGS (9)
  1. ONDANSETRON [Concomitant]
     Active Substance: ONDANSETRON
  2. OMEPRAZOLE. [Concomitant]
     Active Substance: OMEPRAZOLE
  3. CALCIUM [Concomitant]
     Active Substance: CALCIUM
  4. SENNA [Concomitant]
     Active Substance: SENNA LEAF\SENNOSIDES\SENNOSIDES A AND B
  5. LENVIMA [Suspect]
     Active Substance: LENVATINIB
     Indication: ENDOMETRIAL CANCER
     Route: 048
     Dates: start: 2020, end: 202006
  6. LENVIMA [Suspect]
     Active Substance: LENVATINIB
     Dosage: PATIENT DID NOT TAKE LENVIMA FOR 4?5 DAYS
     Route: 048
     Dates: start: 2020
  7. DOCUSATE [Concomitant]
     Active Substance: DOCUSATE
  8. OXYCODONE [Concomitant]
     Active Substance: OXYCODONE
  9. MARINOL [Suspect]
     Active Substance: DRONABINOL
     Indication: DECREASED APPETITE
     Dosage: DOSING AND FREQUENCY NOT KNOWN
     Dates: start: 2020

REACTIONS (6)
  - Constipation [Unknown]
  - Nausea [Unknown]
  - Decreased appetite [Unknown]
  - Weight decreased [Unknown]
  - Dry mouth [Unknown]
  - Fatigue [Unknown]

NARRATIVE: CASE EVENT DATE: 202006
